FAERS Safety Report 11179579 (Version 3)
Quarter: 2015Q3

REPORT INFORMATION
  Report Type: Spontaneous
  Country: FR (occurrence: FR)
  Receive Date: 20150611
  Receipt Date: 20150728
  Transmission Date: 20151125
  Serious: Yes (Hospitalization)
  Sender: FDA-Public Use
  Company Number: FR-ROCHE-1590475

PATIENT
  Age: 52 Year
  Sex: Male

DRUGS (12)
  1. CRESTOR [Concomitant]
     Active Substance: ROSUVASTATIN CALCIUM
     Dosage: REINTRODUCED
     Route: 065
     Dates: start: 20150409
  2. METFORMIN [Concomitant]
     Active Substance: METFORMIN HYDROCHLORIDE
     Dosage: REINTRODUCED
     Route: 065
     Dates: start: 20150417
  3. DUPHALAC [Suspect]
     Active Substance: LACTULOSE
     Indication: PRODUCT USED FOR UNKNOWN INDICATION
     Route: 048
     Dates: start: 20150415, end: 20150421
  4. VALIUM [Suspect]
     Active Substance: DIAZEPAM
     Indication: PRODUCT USED FOR UNKNOWN INDICATION
     Dosage: 10 MG/2 ML 1AMPOULE EVERY 8 HOUR
     Route: 042
     Dates: start: 20150409, end: 20150419
  5. LOXAPAC [Suspect]
     Active Substance: LOXAPINE SUCCINATE
     Dosage: 60 MG/2ML EVERY 8 HOUR
     Route: 030
     Dates: start: 20150409, end: 20150423
  6. LEPTICUR [Suspect]
     Active Substance: TROPATEPINE HYDROCHLORIDE
     Indication: PRODUCT USED FOR UNKNOWN INDICATION
     Dosage: THEN 3 TABLET/DAY FROM 10/APR/2015
     Route: 048
     Dates: start: 20150409, end: 20150423
  7. SOLIAN [Suspect]
     Active Substance: AMISULPRIDE
     Indication: PRODUCT USED FOR UNKNOWN INDICATION
     Dosage: FROM 16/APR/2015DOSE INCREASED TO 400 MG/DAY THEN 600 MG/DAY
     Route: 048
     Dates: start: 20150409, end: 20150423
  8. VALIUM [Suspect]
     Active Substance: DIAZEPAM
     Indication: PRODUCT USED FOR UNKNOWN INDICATION
     Dosage: 20 DROPS?FROM 09/APR/2015 SWITCHED TO INTRAVENOUS
     Route: 048
     Dates: start: 20150406
  9. LOXAPAC [Suspect]
     Active Substance: LOXAPINE SUCCINATE
     Indication: PRODUCT USED FOR UNKNOWN INDICATION
     Dosage: 75 DROPS
     Route: 048
     Dates: start: 20150406
  10. IMOVANE [Concomitant]
     Active Substance: ZOPICLONE
     Indication: INSOMNIA
     Route: 048
     Dates: start: 20150410, end: 20150423
  11. MOTILIUM [Suspect]
     Active Substance: DOMPERIDONE
     Indication: NAUSEA
     Route: 048
     Dates: start: 20150415, end: 20150421
  12. SPASFON (FRANCE) [Suspect]
     Active Substance: PHLOROGLUCINOL
     Indication: ABDOMINAL PAIN
     Route: 048
     Dates: start: 20150415, end: 20150421

REACTIONS (1)
  - Acute generalised exanthematous pustulosis [Recovering/Resolving]

NARRATIVE: CASE EVENT DATE: 20150418
